FAERS Safety Report 7001325-6 (Version None)
Quarter: 2010Q3

REPORT INFORMATION
  Report Type: 
  Country: None (occurrence: None)
  Receive Date: 20100920
  Receipt Date: 20100512
  Transmission Date: 20110219
  Serious: No
  Sender: FDA-Public Use
  Company Number: US-ASTRAZENECA-2010SE21955

PATIENT
  Age: 710 Month
  Sex: Male
  Weight: 93.4 kg

DRUGS (1)
  1. SEROQUEL XR [Suspect]
     Indication: BIPOLAR DISORDER
     Route: 048
     Dates: start: 20100301

REACTIONS (4)
  - DEPRESSION [None]
  - FEELING ABNORMAL [None]
  - IMPATIENCE [None]
  - WEIGHT INCREASED [None]
